FAERS Safety Report 7379931-9 (Version None)
Quarter: 2011Q1

REPORT INFORMATION
  Report Type: 
  Country: None (occurrence: None)
  Receive Date: 20110329
  Receipt Date: 20110315
  Transmission Date: 20110831
  Serious: Yes (Other)
  Sender: FDA-Public Use
  Company Number: PHHY2011BR22566

PATIENT
  Sex: Female
  Weight: 60 kg

DRUGS (1)
  1. DIOVAN [Suspect]
     Indication: HYPERTENSION
     Dosage: 320 MG, 1 TABLET DAILY
     Route: 048
     Dates: start: 20110312

REACTIONS (1)
  - SWELLING [None]
